FAERS Safety Report 5125554-1 (Version None)
Quarter: 2006Q4

REPORT INFORMATION
  Report Type: 
  Country: None (occurrence: None)
  Receive Date: 20061006
  Receipt Date: 20060815
  Transmission Date: 20070319
  Serious: No
  Sender: FDA-Public Use
  Company Number: 2006S1007705

PATIENT
  Age: 48 Year
  Sex: Male
  Weight: 77.1115 kg

DRUGS (10)
  1. CLOZAPINE [Suspect]
     Indication: SCHIZOPHRENIA
     Dosage: SEE IMAGE, PO
     Route: 048
     Dates: start: 20060701
  2. CLOZAPINE [Suspect]
     Indication: SCHIZOPHRENIA
     Dosage: 50 MG; HS; PO
     Route: 048
     Dates: start: 20060701, end: 20060807
  3. METFORMIN HYDROCHLORIDE [Concomitant]
  4. GLIPIZIDE [Concomitant]
  5. TRAZODONE HCL [Concomitant]
  6. BENZTROPINE MESYLATE [Concomitant]
  7. DIPHENHYDRAMINE HCL [Concomitant]
  8. PROPRANOLOL [Concomitant]
  9. TRAMADOL HCL [Concomitant]
  10. METAXALONE [Concomitant]

REACTIONS (5)
  - BODY TEMPERATURE INCREASED [None]
  - GRANULOCYTOPENIA [None]
  - HEART RATE INCREASED [None]
  - MUSCULOSKELETAL STIFFNESS [None]
  - SYNCOPE [None]
